FAERS Safety Report 8340988-X (Version None)
Quarter: 2012Q2

REPORT INFORMATION
  Report Type: 
  Country: None (occurrence: None)
  Receive Date: 20120507
  Receipt Date: 20110801
  Transmission Date: 20120825
  Serious: No
  Sender: FDA-Public Use
  Company Number: US-MYLANLABS-2011S1016157

PATIENT
  Age: 24 Year
  Sex: Female

DRUGS (1)
  1. METHYLDOPA [Suspect]

REACTIONS (2)
  - DRUG SCREEN FALSE POSITIVE [None]
  - HYPERTENSION [None]
